FAERS Safety Report 10934917 (Version 1)
Quarter: 2015Q1

REPORT INFORMATION
  Report Type: Spontaneous
  Country: BR (occurrence: BR)
  Receive Date: 20150320
  Receipt Date: 20150320
  Transmission Date: 20150721
  Serious: Yes (Other)
  Sender: FDA-Public Use
  Company Number: BR-SA-2015SA033486

PATIENT
  Age: 72 Year
  Sex: Female

DRUGS (2)
  1. CLIKSTAR [Concomitant]
     Active Substance: CLIKSTAR
     Indication: DEVICE THERAPY
  2. LANTUS [Suspect]
     Active Substance: INSULIN GLARGINE
     Indication: DIABETES MELLITUS
     Dosage: STRENGTH: 3 ML CARTRIDGE
     Route: 065

REACTIONS (2)
  - Cerebrovascular accident [Unknown]
  - Surgery [Unknown]

NARRATIVE: CASE EVENT DATE: 2013
